FAERS Safety Report 18761751 (Version 1)
Quarter: 2021Q1

REPORT INFORMATION
  Report Type: Spontaneous
  Country: US (occurrence: US)
  Receive Date: 20210119
  Receipt Date: 20210119
  Transmission Date: 20210419
  Serious: Yes (Life-Threatening, Hospitalization, Disabling, Other)
  Sender: FDA-Public Use
  Company Number: None

PATIENT
  Age: 28 Year
  Sex: Male
  Weight: 114.75 kg

DRUGS (7)
  1. ZIPRASIDONE CAP 20MG [Suspect]
     Active Substance: ZIPRASIDONE
     Indication: WEIGHT DECREASED
     Route: 048
     Dates: start: 20201108, end: 20201112
  2. CLONIDINE. [Concomitant]
     Active Substance: CLONIDINE
  3. VITAMIN D3 [Concomitant]
     Active Substance: CHOLECALCIFEROL
  4. RISPERIDONE. [Suspect]
     Active Substance: RISPERIDONE
  5. METFORMIN [Concomitant]
     Active Substance: METFORMIN HYDROCHLORIDE
  6. ZIPRASIDONE CAP 20MG [Suspect]
     Active Substance: ZIPRASIDONE
     Indication: SCHIZOAFFECTIVE DISORDER
     Route: 048
     Dates: start: 20201108, end: 20201112
  7. PSUEDOEPHEDRINE XR [Concomitant]

REACTIONS (12)
  - Urine abnormality [None]
  - Nerve injury [None]
  - Hallucination [None]
  - Respiratory disorder [None]
  - Gastrooesophageal reflux disease [None]
  - Diarrhoea [None]
  - Insomnia [None]
  - White blood cell count increased [None]
  - Abdominal pain [None]
  - Urine ketone body present [None]
  - Product complaint [None]
  - Pollakiuria [None]

NARRATIVE: CASE EVENT DATE: 20201110
